FAERS Safety Report 7411717-9 (Version None)
Quarter: 2011Q2

REPORT INFORMATION
  Report Type: 
  Country: None (occurrence: None)
  Receive Date: 20110413
  Receipt Date: 20101202
  Transmission Date: 20111010
  Serious: No
  Sender: FDA-Public Use
  Company Number: US-BRISTOL-MYERS SQUIBB COMPANY-15402738

PATIENT
  Age: 53 Year
  Sex: Female

DRUGS (1)
  1. ERBITUX [Suspect]
     Indication: TONSIL CANCER
     Dosage: LIQIUD INFUSION;400MG/M2 LDX1DOSE; 250MG/M2 WEEKX5,LAST DOSE ON 09SEP10
     Route: 042
     Dates: start: 20100812

REACTIONS (1)
  - ACNE [None]
